FAERS Safety Report 7563858-3 (Version None)
Quarter: 2011Q2

REPORT INFORMATION
  Report Type: 
  Country: None (occurrence: None)
  Receive Date: 20110525
  Receipt Date: 20110322
  Transmission Date: 20111010
  Serious: No
  Sender: FDA-Public Use
  Company Number: 325540

PATIENT
  Age: 69 Year
  Sex: Male

DRUGS (3)
  1. TAPAZOLE [Concomitant]
  2. VICTOZA [Suspect]
     Indication: TYPE 2 DIABETES MELLITUS
     Dosage: 1.8 MG, QD
     Dates: start: 20100415, end: 20110330
  3. MORPHINE [Suspect]
     Indication: BACK PAIN
     Dosage: 30 MG, BID
     Dates: start: 20100101

REACTIONS (6)
  - BACK PAIN [None]
  - ABDOMINAL DISTENSION [None]
  - CONSTIPATION [None]
  - VOMITING [None]
  - NAUSEA [None]
  - DIARRHOEA [None]
